FAERS Safety Report 4902597-1 (Version None)
Quarter: 2006Q1

REPORT INFORMATION
  Report Type: 
  Country: None (occurrence: None)
  Receive Date: 20060207
  Receipt Date: 20060126
  Transmission Date: 20060701
  Serious: Yes (Hospitalization)
  Sender: FDA-Public Use
  Company Number: US-JNJFOC-20060105742

PATIENT
  Sex: Female

DRUGS (26)
  1. INFLIXIMAB [Suspect]
     Indication: RHEUMATOID ARTHRITIS
     Route: 042
  2. AMITRIPTYLINE HCL [Concomitant]
     Dosage: DAILY
  3. FOLIC ACID [Concomitant]
     Dosage: DAILY
  4. GLUCOSAMINE [Concomitant]
     Dosage: DAILY
  5. IMITREX [Concomitant]
  6. MULTI-VITAMIN [Concomitant]
  7. MULTI-VITAMIN [Concomitant]
  8. MULTI-VITAMIN [Concomitant]
  9. MULTI-VITAMIN [Concomitant]
  10. MULTI-VITAMIN [Concomitant]
  11. MULTI-VITAMIN [Concomitant]
  12. MULTI-VITAMIN [Concomitant]
  13. MULTI-VITAMIN [Concomitant]
     Dosage: DAILY
  14. PREDNISONE [Concomitant]
  15. PREMARIN [Concomitant]
     Dosage: DAILY
  16. PRILOSEC [Concomitant]
  17. PROZAC [Concomitant]
  18. TOPROL [Concomitant]
     Dosage: DAILY
  19. METHOTREXATE [Concomitant]
  20. CRESTOR [Concomitant]
     Dosage: DAILY
  21. VITAMIN B COMPLEX CAP [Concomitant]
  22. VITAMIN B COMPLEX CAP [Concomitant]
  23. VITAMIN B COMPLEX CAP [Concomitant]
  24. VITAMIN B COMPLEX CAP [Concomitant]
  25. VITAMIN B COMPLEX CAP [Concomitant]
     Dosage: DAILY
  26. CALCIUM GLUCONATE [Concomitant]
     Dosage: DAILY

REACTIONS (1)
  - ASTHMA [None]
